FAERS Safety Report 22173572 (Version 2)
Quarter: 2023Q2

REPORT INFORMATION
  Report Type: Spontaneous
  Country: US (occurrence: US)
  Receive Date: 20230404
  Receipt Date: 20230407
  Transmission Date: 20230722
  Serious: No
  Sender: FDA-Public Use
  Company Number: US-PFIZER INC-202300141597

PATIENT
  Age: 81 Year
  Sex: Female

DRUGS (2)
  1. TIKOSYN [Suspect]
     Active Substance: DOFETILIDE
     Indication: Atrial fibrillation
     Dosage: 125 UG, 2X/DAY
  2. DILTIAZEM [Concomitant]
     Active Substance: DILTIAZEM
     Indication: Hypertension
     Dosage: 30 MG, 3X/DAY

REACTIONS (3)
  - Product dose omission issue [Unknown]
  - Headache [Unknown]
  - Memory impairment [Unknown]

NARRATIVE: CASE EVENT DATE: 20230331
